FAERS Safety Report 5515702-3 (Version None)
Quarter: 2007Q4

REPORT INFORMATION
  Report Type: 
  Country: None (occurrence: None)
  Receive Date: 20071113
  Receipt Date: 20070831
  Transmission Date: 20080405
  Serious: No
  Sender: FDA-Public Use
  Company Number: A0678100A

PATIENT
  Age: 51 Year
  Sex: Male

DRUGS (1)
  1. COREG [Suspect]
     Dosage: 12.5MG TWICE PER DAY
     Route: 048
     Dates: start: 20050201

REACTIONS (3)
  - BLOOD PRESSURE INCREASED [None]
  - HEART RATE INCREASED [None]
  - PHARMACEUTICAL PRODUCT COMPLAINT [None]
